FAERS Safety Report 8587544 (Version 3)
Quarter: 2013Q1

REPORT INFORMATION
  Report Type: Report from Study
  Country: DE (occurrence: DE)
  Receive Date: 20120531
  Receipt Date: 20130123
  Transmission Date: 20140127
  Serious: Yes (Hospitalization, Other)
  Sender: FDA-Public Use
  Company Number: DE-TEVA-340103USA

PATIENT
  Age: 46 Year
  Sex: Male
  Weight: 76 kg

DRUGS (8)
  1. TREANDA [Suspect]
     Indication: CHRONIC LYMPHOCYTIC LEUKAEMIA
     Route: 042
     Dates: start: 20110404
  2. RITUXIMAB [Suspect]
     Indication: CHRONIC LYMPHOCYTIC LEUKAEMIA
     Dosage: UNKNOWN/D
     Route: 042
     Dates: start: 20110404
  3. OMEPRAZOLE [Concomitant]
     Indication: ULCER
  4. FENISTIL [Concomitant]
  5. ZANTIC [Concomitant]
  6. PREDNISOLON [Concomitant]
     Route: 042
  7. KEVATRIL [Concomitant]
  8. PARACETAMOL [Concomitant]

REACTIONS (1)
  - Hepatitis toxic [Recovered/Resolved]
